FAERS Safety Report 19492911 (Version 2)
Quarter: 2021Q3

REPORT INFORMATION
  Report Type: Spontaneous
  Country: US (occurrence: US)
  Receive Date: 20210705
  Receipt Date: 20210818
  Transmission Date: 20211014
  Serious: No
  Sender: FDA-Public Use
  Company Number: US-BIOFRONTERA-000745

PATIENT
  Age: 77 Year
  Sex: Female

DRUGS (1)
  1. AMELUZ [Suspect]
     Active Substance: AMINOLEVULINIC ACID HYDROCHLORIDE
     Indication: ACTINIC KERATOSIS
     Route: 061
     Dates: start: 20210603, end: 20210603

REACTIONS (2)
  - Photophobia [Recovering/Resolving]
  - Eye irritation [Recovering/Resolving]

NARRATIVE: CASE EVENT DATE: 20210603
